FAERS Safety Report 4447959-4 (Version None)
Quarter: 2004Q3

REPORT INFORMATION
  Report Type: 
  Country: None (occurrence: None)
  Receive Date: 20040813
  Receipt Date: 20040625
  Transmission Date: 20050211
  Serious: No
  Sender: FDA-Public Use
  Company Number: S04-USA-03777-01

PATIENT
  Age: 87 Year
  Sex: Male

DRUGS (13)
  1. NAMENDA [Suspect]
     Indication: DEMENTIA ALZHEIMER'S TYPE
     Dosage: 5 MG QD PO
     Route: 048
     Dates: start: 20040604, end: 20040610
  2. NAMENDA [Suspect]
     Indication: DEMENTIA ALZHEIMER'S TYPE
     Dosage: 10 MG QD PO
     Route: 048
     Dates: start: 20040611, end: 20040617
  3. NAMENDA [Suspect]
     Indication: DEMENTIA ALZHEIMER'S TYPE
     Dosage: 15 MG QD PO
     Route: 048
     Dates: start: 20040618, end: 20040624
  4. NAMENDA [Suspect]
     Indication: DEMENTIA ALZHEIMER'S TYPE
     Dosage: 20 MG QD PO
     Route: 048
     Dates: start: 20040625, end: 20040625
  5. FLOMAX [Concomitant]
  6. PLAVIX [Concomitant]
  7. DOCUSATE [Concomitant]
  8. NORVASC [Concomitant]
  9. CALCIUM [Concomitant]
  10. PROZAC [Concomitant]
  11. BEXTRA [Concomitant]
  12. IRON [Concomitant]
  13. ZINC [Concomitant]

REACTIONS (4)
  - ANAEMIA [None]
  - APHASIA [None]
  - EATING DISORDER [None]
  - UPPER RESPIRATORY TRACT INFECTION [None]
